FAERS Safety Report 15470951 (Version 2)
Quarter: 2018Q4

REPORT INFORMATION
  Report Type: Spontaneous
  Country: US (occurrence: US)
  Receive Date: 20181006
  Receipt Date: 20181104
  Transmission Date: 20190205
  Serious: No
  Sender: FDA-Public Use
  Company Number: US-JNJFOC-20180923185

PATIENT
  Sex: Male
  Weight: 58 kg

DRUGS (8)
  1. REMICADE [Concomitant]
     Active Substance: INFLIXIMAB
  2. VITAMIN D3 [Concomitant]
     Active Substance: CHOLECALCIFEROL
  3. CYANOCOBALAMIN. [Concomitant]
     Active Substance: CYANOCOBALAMIN
  4. PAROXETINE. [Concomitant]
     Active Substance: PAROXETINE
  5. DULOXETINE. [Concomitant]
     Active Substance: DULOXETINE
  6. IMBRUVICA [Suspect]
     Active Substance: IBRUTINIB
     Indication: B-CELL SMALL LYMPHOCYTIC LYMPHOMA
     Dosage: 420 MG, QD
     Route: 048
     Dates: start: 20180723, end: 201809
  7. ATORVASTATIN [Concomitant]
     Active Substance: ATORVASTATIN
  8. PANTOPRAZOLE [Concomitant]
     Active Substance: PANTOPRAZOLE

REACTIONS (1)
  - Drug ineffective [Unknown]

NARRATIVE: CASE EVENT DATE: 2018
